FAERS Safety Report 15924632 (Version 1)
Quarter: 2019Q1

REPORT INFORMATION
  Report Type: Spontaneous
  Country: CN (occurrence: CN)
  Receive Date: 20190206
  Receipt Date: 20190206
  Transmission Date: 20190417
  Serious: Yes (Hospitalization)
  Sender: FDA-Public Use
  Company Number: CN-ROCHE-2256409

PATIENT
  Age: 50 Year
  Sex: Female
  Weight: 60 kg

DRUGS (4)
  1. NEDAPLATIN [Concomitant]
     Active Substance: NEDAPLATIN
     Indication: LUNG ADENOCARCINOMA
     Route: 041
     Dates: start: 20181109, end: 20181109
  2. CRIZOTINIB [Concomitant]
     Active Substance: CRIZOTINIB
  3. PEMETREXED DISODIUM [Suspect]
     Active Substance: PEMETREXED DISODIUM
     Indication: LUNG ADENOCARCINOMA
     Route: 041
     Dates: start: 20181109, end: 20181109
  4. AVASTIN [Suspect]
     Active Substance: BEVACIZUMAB
     Indication: LUNG ADENOCARCINOMA
     Route: 041
     Dates: start: 20181109, end: 20181109

REACTIONS (4)
  - Haemoptysis [Recovering/Resolving]
  - Diarrhoea [Recovering/Resolving]
  - Alanine aminotransferase increased [Recovering/Resolving]
  - Constipation [Unknown]

NARRATIVE: CASE EVENT DATE: 20181113
